FAERS Safety Report 6938241-1 (Version None)
Quarter: 2010Q3

REPORT INFORMATION
  Report Type: 
  Country: None (occurrence: None)
  Receive Date: 20100824
  Receipt Date: 20091216
  Transmission Date: 20110219
  Serious: No
  Sender: FDA-Public Use
  Company Number: A0816300A

PATIENT
  Age: 54 Year
  Sex: Female
  Weight: 75 kg

DRUGS (4)
  1. MALARONE [Suspect]
     Indication: MALARIA PROPHYLAXIS
     Dosage: 250MG PER DAY
     Route: 048
     Dates: start: 20091110, end: 20091215
  2. CLARITIN [Concomitant]
  3. SYNTHROID [Concomitant]
  4. TAMIFLU [Concomitant]

REACTIONS (3)
  - EAR PAIN [None]
  - INCREASED UPPER AIRWAY SECRETION [None]
  - THROAT TIGHTNESS [None]
